FAERS Safety Report 5305469-6 (Version None)
Quarter: 2007Q2

REPORT INFORMATION
  Report Type: 
  Country: None (occurrence: None)
  Receive Date: 20070424
  Receipt Date: 20060308
  Transmission Date: 20071010
  Serious: No
  Sender: FDA-Public Use
  Company Number: US-GLAXOSMITHKLINE-A0596726A

PATIENT
  Age: 51 Year
  Sex: Male

DRUGS (4)
  1. SEREVENT [Suspect]
     Indication: ASTHMA
     Dosage: 1SPR AS REQUIRED
     Route: 055
     Dates: start: 20011101, end: 20011101
  2. THEOPHYLLINE [Concomitant]
  3. ALBUTEROL [Concomitant]
  4. PREDNISONE TAB [Concomitant]

REACTIONS (2)
  - DIZZINESS [None]
  - NAUSEA [None]
